FAERS Safety Report 15566495 (Version 2)
Quarter: 2018Q4

REPORT INFORMATION
  Report Type: Spontaneous
  Country: US (occurrence: US)
  Receive Date: 20181030
  Receipt Date: 20181113
  Transmission Date: 20190205
  Serious: Yes (Other)
  Sender: FDA-Public Use
  Company Number: US-TEVA-2018-US-969304

PATIENT
  Age: 71 Year
  Sex: Female

DRUGS (13)
  1. BENAZEPRIL [Interacting]
     Active Substance: BENAZEPRIL HYDROCHLORIDE
     Route: 065
  2. LEVOTHYROXINE. [Concomitant]
     Active Substance: LEVOTHYROXINE
     Route: 065
  3. DIPHENHYDRAMINE. [Concomitant]
     Active Substance: DIPHENHYDRAMINE
     Route: 065
  4. ASPIRIN. [Concomitant]
     Active Substance: ASPIRIN
     Route: 065
  5. CALCIUM [Concomitant]
     Active Substance: CALCIUM
     Route: 065
  6. FISH OIL [Concomitant]
     Active Substance: FISH OIL
     Route: 065
  7. ATENOLOL. [Interacting]
     Active Substance: ATENOLOL
     Route: 065
  8. LORATADINE. [Interacting]
     Active Substance: LORATADINE
     Route: 065
  9. METOPROLOL. [Interacting]
     Active Substance: METOPROLOL
     Route: 065
  10. AMLODIPINE [Suspect]
     Active Substance: AMLODIPINE BESYLATE
     Route: 065
  11. MELOXICAM. [Interacting]
     Active Substance: MELOXICAM
     Route: 065
  12. VITAMIN D [Concomitant]
     Active Substance: CHOLECALCIFEROL
     Route: 065
  13. ESTRADIOL. [Interacting]
     Active Substance: ESTRADIOL
     Route: 065

REACTIONS (2)
  - Drug interaction [Recovered/Resolved]
  - Autoimmune hepatitis [Recovered/Resolved]
